FAERS Safety Report 15778543 (Version 1)
Quarter: 2018Q4

REPORT INFORMATION
  Report Type: Report from Study
  Country: US (occurrence: US)
  Receive Date: 20181231
  Receipt Date: 20181231
  Transmission Date: 20190205
  Serious: Yes (Hospitalization, Other)
  Sender: FDA-Public Use
  Company Number: US-GILEAD-2018-0381871

PATIENT
  Age: 19 Year
  Sex: Male

DRUGS (10)
  1. VENTOLIN [Concomitant]
     Active Substance: ALBUTEROL SULFATE
  2. ZENPEP [Concomitant]
     Active Substance: PANCRELIPASE AMYLASE\PANCRELIPASE LIPASE\PANCRELIPASE PROTEASE
  3. SMZ-TMP [Concomitant]
     Active Substance: SULFAMETHOXAZOLE\TRIMETHOPRIM
  4. TRIAMCINOLON [TRIAMCINOLONE] [Concomitant]
  5. PULMOZYME [Concomitant]
     Active Substance: DORNASE ALFA
  6. AZTREONAM LYSINE [Suspect]
     Active Substance: AZTREONAM LYSINE
     Indication: CYSTIC FIBROSIS
     Dosage: 1 VIAL VIA NEBULIZER TID X28, OFF 28
     Route: 055
     Dates: start: 20170421
  7. LEVOFLOXACIN. [Concomitant]
     Active Substance: LEVOFLOXACIN
  8. AZITHROMYCIN ANHYDROUS. [Concomitant]
     Active Substance: AZITHROMYCIN ANHYDROUS
  9. OCEAN NASAL [Concomitant]
  10. SODIUM CHLORIDE. [Concomitant]
     Active Substance: SODIUM CHLORIDE

REACTIONS (1)
  - Cystic fibrosis [Unknown]

NARRATIVE: CASE EVENT DATE: 20181126
